FAERS Safety Report 13741433 (Version 1)
Quarter: 2017Q3

REPORT INFORMATION
  Report Type: Spontaneous
  Country: US (occurrence: US)
  Receive Date: 20170711
  Receipt Date: 20170711
  Transmission Date: 20171127
  Serious: Yes (Death)
  Sender: FDA-Public Use
  Company Number: US-ROCHE-1902209

PATIENT
  Age: 85 Year
  Sex: Female

DRUGS (26)
  1. FEMARA [Concomitant]
     Active Substance: LETROZOLE
  2. DEXAMETHASONE. [Concomitant]
     Active Substance: DEXAMETHASONE
  3. ONDANSETRON [Concomitant]
     Active Substance: ONDANSETRON
  4. LORAZEPAM. [Concomitant]
     Active Substance: LORAZEPAM
  5. TARCEVA [Suspect]
     Active Substance: ERLOTINIB HYDROCHLORIDE
     Route: 048
     Dates: start: 20170402
  6. PANTOPRAZOLE [Concomitant]
     Active Substance: PANTOPRAZOLE
  7. DIOVAN [Concomitant]
     Active Substance: VALSARTAN
  8. GLIMEPIRIDE. [Concomitant]
     Active Substance: GLIMEPIRIDE
  9. SIMVASTATIN. [Concomitant]
     Active Substance: SIMVASTATIN
  10. GABAPENTIN. [Concomitant]
     Active Substance: GABAPENTIN
  11. ZOCOR [Concomitant]
     Active Substance: SIMVASTATIN
  12. TARCEVA [Suspect]
     Active Substance: ERLOTINIB HYDROCHLORIDE
     Indication: LUNG NEOPLASM MALIGNANT
     Route: 048
     Dates: start: 20170222
  13. ZOFRAN [Concomitant]
     Active Substance: ONDANSETRON HYDROCHLORIDE
  14. LASIX [Concomitant]
     Active Substance: FUROSEMIDE
  15. TOPROL XL [Concomitant]
     Active Substance: METOPROLOL SUCCINATE
  16. CARBOPLATIN. [Concomitant]
     Active Substance: CARBOPLATIN
  17. ATIVAN [Concomitant]
     Active Substance: LORAZEPAM
  18. FUROSEMIDE. [Concomitant]
     Active Substance: FUROSEMIDE
  19. PROTONIX [Concomitant]
     Active Substance: PANTOPRAZOLE SODIUM
  20. AVASTIN [Suspect]
     Active Substance: BEVACIZUMAB
     Indication: PRODUCT USED FOR UNKNOWN INDICATION
     Route: 065
  21. PRADAXA [Concomitant]
     Active Substance: DABIGATRAN ETEXILATE MESYLATE
  22. AZITHROMYCIN ANHYDROUS. [Concomitant]
     Active Substance: AZITHROMYCIN ANHYDROUS
  23. PROCHLORPERAZINE. [Concomitant]
     Active Substance: PROCHLORPERAZINE
  24. ALIMTA [Concomitant]
     Active Substance: PEMETREXED DISODIUM
  25. FOLIC ACID. [Concomitant]
     Active Substance: FOLIC ACID
  26. METOPROLOL TARTRATE. [Concomitant]
     Active Substance: METOPROLOL TARTRATE

REACTIONS (9)
  - Nasopharyngitis [Unknown]
  - Abdominal pain upper [Unknown]
  - Intercepted medication error [Unknown]
  - Dry skin [Unknown]
  - Diarrhoea [Unknown]
  - Wrong technique in product usage process [Unknown]
  - Death [Fatal]
  - Insomnia [Unknown]
  - Alopecia [Unknown]

NARRATIVE: CASE EVENT DATE: 20170622
